FAERS Safety Report 22158015 (Version 1)
Quarter: 2023Q1

REPORT INFORMATION
  Report Type: Spontaneous
  Country: US (occurrence: US)
  Receive Date: 20230330
  Receipt Date: 20230330
  Transmission Date: 20230417
  Serious: Yes (Other)
  Sender: FDA-Public Use
  Company Number: US-TEVA-2023-US-2870039

PATIENT
  Age: 48 Year
  Sex: Male

DRUGS (10)
  1. DOXORUBICIN [Suspect]
     Active Substance: DOXORUBICIN
     Indication: Plasmablastic lymphoma
     Dosage: 10 MG/M2 RECEIVED DURING CYCLES 1-6
     Route: 065
  2. ETOPOSIDE [Suspect]
     Active Substance: ETOPOSIDE
     Indication: Plasmablastic lymphoma
     Dosage: 37.5 MG/M2 RECEIVED DURING CYCLE 1-2
     Route: 065
  3. ETOPOSIDE [Suspect]
     Active Substance: ETOPOSIDE
     Dosage: 50 MG/M2 RECEIVED DURING CYCLE 3-6
     Route: 065
  4. VINCRISTINE [Suspect]
     Active Substance: VINCRISTINE
     Indication: Plasmablastic lymphoma
     Dosage: 0.3 MG/M2 RECEIVED DURING CYCLE 1
     Route: 065
  5. VINCRISTINE [Suspect]
     Active Substance: VINCRISTINE
     Dosage: 0.4 MG/M2 RECEIVED DURING CYCLE 3,5 AND 6
     Route: 065
  6. VINCRISTINE [Suspect]
     Active Substance: VINCRISTINE
     Dosage: 0.2 MG/M2 RECEIVED DURING CYCLE 2 AND 4
     Route: 065
  7. METHOTREXATE [Suspect]
     Active Substance: METHOTREXATE
     Indication: Plasmablastic lymphoma
     Dosage: 12 MG RECEIVED DURING CYCLE 1-6
     Route: 037
  8. METHOTREXATE [Suspect]
     Active Substance: METHOTREXATE
     Dosage: 6 MG/M2 RECEIVED ON DAY 15 DURING CYCLE 1, 3 AND 5
     Route: 065
  9. CYCLOPHOSPHAMIDE [Suspect]
     Active Substance: CYCLOPHOSPHAMIDE
     Indication: Plasmablastic lymphoma
     Dosage: 187.5 MG/M2 RECEIVED DURING CYCLE 1-6
     Route: 065
  10. DARATUMUMAB [Suspect]
     Active Substance: DARATUMUMAB
     Indication: Plasmablastic lymphoma
     Dosage: 16 MG/KG
     Route: 065

REACTIONS (11)
  - Neuropathy peripheral [Unknown]
  - Anaemia [Unknown]
  - HIV infection [Unknown]
  - Clostridium difficile infection [Unknown]
  - Norovirus infection [Unknown]
  - Epstein-Barr virus infection [Unknown]
  - Hypokalaemia [Unknown]
  - Hypomagnesaemia [Unknown]
  - Diarrhoea [Unknown]
  - Malnutrition [Unknown]
  - Off label use [Unknown]
